FAERS Safety Report 4698226-5 (Version None)
Quarter: 2005Q2

REPORT INFORMATION
  Report Type: 
  Country: None (occurrence: None)
  Receive Date: 20050623
  Receipt Date: 20050613
  Transmission Date: 20051028
  Serious: Yes (Other)
  Sender: FDA-Public Use
  Company Number: DE-BRISTOL-MYERS SQUIBB COMPANY-13002027

PATIENT
  Sex: Female

DRUGS (1)
  1. DYNACIL [Suspect]
     Indication: HYPERTENSION
     Route: 048

REACTIONS (4)
  - AGEUSIA [None]
  - ALOPECIA [None]
  - NAUSEA [None]
  - OEDEMA PERIPHERAL [None]
